FAERS Safety Report 11627617 (Version 1)
Quarter: 2015Q4

REPORT INFORMATION
  Report Type: Spontaneous
  Country: US (occurrence: US)
  Receive Date: 20151014
  Receipt Date: 20151014
  Transmission Date: 20160304
  Serious: No
  Sender: FDA-Public Use
  Company Number: US-TEVA-575675USA

PATIENT
  Sex: Male

DRUGS (1)
  1. ESOMEPRAZOLE [Suspect]
     Active Substance: ESOMEPRAZOLE
     Dates: start: 20150427, end: 20150511

REACTIONS (3)
  - Bowel movement irregularity [Recovered/Resolved]
  - Product substitution issue [Unknown]
  - Abdominal pain [Recovered/Resolved]
